FAERS Safety Report 5281981-3 (Version None)
Quarter: 2007Q1

REPORT INFORMATION
  Report Type: 
  Country: None (occurrence: None)
  Receive Date: 20070330
  Receipt Date: 20070323
  Transmission Date: 20070707
  Serious: Yes (Other)
  Sender: FDA-Public Use
  Company Number: CA-BOEHRINGER INGELHEIM PHARMACEUTICALS, INC.-2007-CN-00266CN

PATIENT
  Sex: Male

DRUGS (1)
  1. MICARDIS [Suspect]
     Dates: start: 20061006, end: 20070322

REACTIONS (1)
  - LOSS OF CONSCIOUSNESS [None]
